FAERS Safety Report 17049719 (Version 1)
Quarter: 2019Q4

REPORT INFORMATION
  Report Type: Report from Study
  Country: DE (occurrence: DE)
  Receive Date: 20191119
  Receipt Date: 20191119
  Transmission Date: 20200122
  Serious: Yes (Other)
  Sender: FDA-Public Use
  Company Number: DE-AMGEN-DEUNI2019190567

PATIENT
  Age: 79 Year
  Sex: Female
  Weight: 77 kg

DRUGS (28)
  1. IRINOTECAN [Suspect]
     Active Substance: IRINOTECAN
     Indication: COLORECTAL CANCER METASTATIC
     Dosage: 335 MILLIGRAM
     Route: 065
     Dates: start: 20180423
  2. FOLINIC ACID [Suspect]
     Active Substance: LEUCOVORIN
     Indication: COLORECTAL CANCER METASTATIC
     Dosage: 740 MILLIGRAM
     Route: 065
     Dates: start: 20180423
  3. FOLINIC ACID [Suspect]
     Active Substance: LEUCOVORIN
     Dosage: 750 MILLIGRAM
     Route: 065
     Dates: start: 20190211
  4. FLUOROURACIL. [Suspect]
     Active Substance: FLUOROURACIL
     Dosage: 3365 MILLIGRAM
     Route: 042
     Dates: start: 20190211
  5. FOLINIC ACID [Suspect]
     Active Substance: LEUCOVORIN
     Dosage: 730 MILLIGRAM
     Route: 065
     Dates: start: 20180611
  6. PANITUMUMAB [Suspect]
     Active Substance: PANITUMUMAB
     Dosage: 420 MILLIGRAM
     Route: 042
     Dates: start: 20180802
  7. IRINOTECAN [Suspect]
     Active Substance: IRINOTECAN
     Dosage: 320 MILLIGRAM
     Route: 065
     Dates: start: 20180802
  8. FLUOROURACIL. [Suspect]
     Active Substance: FLUOROURACIL
     Dosage: 4390 MILLIGRAM
     Route: 042
     Dates: start: 20180611
  9. FLUOROURACIL. [Suspect]
     Active Substance: FLUOROURACIL
     Dosage: 550 MILLIGRAM
     Route: 040
     Dates: start: 20180611
  10. FLUOROURACIL. [Suspect]
     Active Substance: FLUOROURACIL
     Dosage: 560 MILLIGRAM
     Route: 040
     Dates: start: 20190211
  11. PANITUMUMAB [Suspect]
     Active Substance: PANITUMUMAB
     Dosage: 435 MILLIGRAM
     Route: 042
     Dates: start: 20180625
  12. FLUOROURACIL. [Suspect]
     Active Substance: FLUOROURACIL
     Dosage: 4365 MILLIGRAM
     Route: 042
     Dates: start: 20180625
  13. AMLODIPINE [Concomitant]
     Active Substance: AMLODIPINE BESYLATE
     Indication: HYPERTENSION
     Dosage: 5 MILLIGRAM, QD
     Route: 048
  14. PANITUMUMAB [Suspect]
     Active Substance: PANITUMUMAB
     Dosage: 440 MILLIGRAM
     Route: 042
     Dates: start: 20180611
  15. FLUOROURACIL. [Suspect]
     Active Substance: FLUOROURACIL
     Dosage: 540 MILLIGRAM
     Route: 040
     Dates: start: 20180802
  16. BISOPROLOL [Concomitant]
     Active Substance: BISOPROLOL
     Indication: HYPERTENSION
     Dosage: 2.5 MILLIGRAM, BID
     Route: 048
  17. RESTEX [Concomitant]
     Active Substance: BENSERAZIDE\LEVODOPA
     Indication: RESTLESS LEGS SYNDROME
     Dosage: UNK UNK, BID
     Route: 048
  18. PANITUMUMAB [Suspect]
     Active Substance: PANITUMUMAB
     Dosage: 465 MILLIGRAM
     Route: 042
     Dates: start: 20190211
  19. IRINOTECAN [Suspect]
     Active Substance: IRINOTECAN
     Dosage: 325 MILLIGRAM
     Route: 065
     Dates: start: 20180611
  20. FLUOROURACIL. [Suspect]
     Active Substance: FLUOROURACIL
     Dosage: 4440 MILLIGRAM
     Route: 042
     Dates: start: 20180423
  21. FLUOROURACIL. [Suspect]
     Active Substance: FLUOROURACIL
     Dosage: 4315 MILLIGRAM
     Route: 042
     Dates: start: 20180802
  22. PANITUMUMAB [Suspect]
     Active Substance: PANITUMUMAB
     Indication: COLORECTAL CANCER METASTATIC
     Dosage: 455 MILLIGRAM
     Route: 042
     Dates: start: 20180423
  23. FOLINIC ACID [Suspect]
     Active Substance: LEUCOVORIN
     Dosage: 720 MILLIGRAM
     Route: 065
     Dates: start: 20180802
  24. SELENASE [SODIUM SELENITE] [Concomitant]
     Indication: SELENIUM DEFICIENCY
     Dosage: 100 MICROGRAM, QD
     Route: 048
  25. IRINOTECAN [Suspect]
     Active Substance: IRINOTECAN
     Dosage: 330 MILLIGRAM
     Route: 065
     Dates: start: 20190211
  26. FLUOROURACIL. [Suspect]
     Active Substance: FLUOROURACIL
     Indication: COLORECTAL CANCER METASTATIC
     Dosage: 740 MILLIGRAM
     Route: 040
     Dates: start: 20180423
  27. CANDESARTAN. [Concomitant]
     Active Substance: CANDESARTAN
     Indication: HYPERTENSION
     Dosage: 4 MILLIGRAM, QD
     Route: 048
  28. DEKRISTOL [Concomitant]
     Active Substance: CHOLECALCIFEROL
     Indication: VITAMIN D DEFICIENCY
     Dosage: 2000 IE QWK
     Route: 048
     Dates: start: 20171030

REACTIONS (1)
  - Atrial fibrillation [Unknown]

NARRATIVE: CASE EVENT DATE: 20190218
